FAERS Safety Report 16479911 (Version 1)
Quarter: 2019Q2

REPORT INFORMATION
  Report Type: Report from Study
  Country: IT (occurrence: IT)
  Receive Date: 20190626
  Receipt Date: 20190626
  Transmission Date: 20190711
  Serious: Yes (Hospitalization)
  Sender: FDA-Public Use
  Company Number: IT-TEVA-2019-IT-1069278

PATIENT
  Age: 50 Year
  Sex: Female

DRUGS (4)
  1. PAROXETINE. [Suspect]
     Active Substance: PAROXETINE
     Dosage: 30 DOSAGE FORMS
     Route: 048
     Dates: start: 20190416, end: 20190416
  2. TRIAZOLAM. [Suspect]
     Active Substance: TRIAZOLAM
     Dosage: 10 DOSAGE FORMS
     Route: 048
     Dates: start: 20190416, end: 20190416
  3. FLURAZEPAM MONOHYDROCHLORIDE [Suspect]
     Active Substance: FLURAZEPAM MONOHYDROCHLORIDE
     Dosage: 15 DOSAGE FORMS
     Route: 048
     Dates: start: 20190416, end: 20190416
  4. ALPRAZOLAM. [Suspect]
     Active Substance: ALPRAZOLAM
     Dosage: 30 DOSAGE FORMS
     Route: 048
     Dates: start: 20190416, end: 20190416

REACTIONS (2)
  - Drug abuse [Recovered/Resolved]
  - Sopor [Recovered/Resolved]

NARRATIVE: CASE EVENT DATE: 20190416
